FAERS Safety Report 13949820 (Version 1)
Quarter: 2017Q3

REPORT INFORMATION
  Report Type: Spontaneous
  Country: US (occurrence: US)
  Receive Date: 20170908
  Receipt Date: 20170908
  Transmission Date: 20171128
  Serious: No
  Sender: FDA-Public Use
  Company Number: US-ROCHE-1180165

PATIENT
  Age: 54 Year
  Sex: Male

DRUGS (5)
  1. PEPCID [Concomitant]
     Active Substance: FAMOTIDINE
  2. TYLENOL [Concomitant]
     Active Substance: ACETAMINOPHEN
  3. BENADRYL [Concomitant]
     Active Substance: DIPHENHYDRAMINE HYDROCHLORIDE
  4. RITUXAN [Suspect]
     Active Substance: RITUXIMAB
     Indication: HAIRY CELL LEUKAEMIA
     Route: 065
  5. DECADRON [Concomitant]
     Active Substance: DEXAMETHASONE

REACTIONS (5)
  - Infusion related reaction [Unknown]
  - Headache [Unknown]
  - Dyspnoea [Unknown]
  - Chest pain [Unknown]
  - Pruritus [Unknown]
